FAERS Safety Report 7608770-6 (Version None)
Quarter: 2011Q3

REPORT INFORMATION
  Report Type: 
  Country: None (occurrence: None)
  Receive Date: 20110714
  Receipt Date: 20110629
  Transmission Date: 20111222
  Serious: Yes (Hospitalization)
  Sender: FDA-Public Use
  Company Number: JP-JNJFOC-20110701382

PATIENT
  Sex: Female
  Weight: 42 kg

DRUGS (12)
  1. REMICADE [Suspect]
     Indication: COLITIS ULCERATIVE
     Route: 042
     Dates: start: 20100723
  2. IMURAN [Suspect]
     Indication: COLITIS ULCERATIVE
     Route: 048
     Dates: start: 20100101
  3. PROGRAF [Suspect]
     Indication: COLITIS ULCERATIVE
     Route: 048
     Dates: start: 20100521, end: 20100722
  4. ASACOL [Suspect]
     Indication: COLITIS ULCERATIVE
     Route: 048
  5. ACTONEL [Concomitant]
     Indication: OSTEOPOROSIS
     Dosage: 17.5 MG/W
     Route: 048
  6. REMICADE [Suspect]
     Route: 042
     Dates: start: 20100809
  7. LAC-B [Concomitant]
     Indication: COLITIS ULCERATIVE
     Route: 048
  8. AMOBAN [Concomitant]
     Indication: ANXIETY DISORDER
     Route: 048
  9. SEDIEL [Concomitant]
     Indication: ANXIETY DISORDER
     Route: 048
  10. THIATON [Concomitant]
     Indication: COLITIS ULCERATIVE
     Route: 048
  11. LANSOPRAZOLE [Concomitant]
     Indication: GASTRIC ULCER
     Route: 048
  12. PREDNISOLONE [Suspect]
     Indication: COLITIS ULCERATIVE
     Route: 048

REACTIONS (3)
  - ASPERGILLOSIS [None]
  - STAPHYLOCOCCAL INFECTION [None]
  - DEVICE RELATED INFECTION [None]
